FAERS Safety Report 9739403 (Version 2)
Quarter: 2013Q4

REPORT INFORMATION
  Report Type: Spontaneous
  Country: US (occurrence: US)
  Receive Date: 20131209
  Receipt Date: 20131209
  Transmission Date: 20140711
  Serious: Yes (Other)
  Sender: FDA-Public Use
  Company Number: US-BRISTOL-MYERS SQUIBB COMPANY-17332354

PATIENT
  Age: 56 Year
  Sex: Female

DRUGS (9)
  1. IXEMPRA [Suspect]
     Indication: BREAST CANCER METASTATIC
     Dosage: POSTPONED DUE TO EVENT
     Dates: start: 20121127, end: 20130211
  2. XELODA [Suspect]
     Indication: BREAST CANCER METASTATIC
     Dates: end: 20130228
  3. OXYCONTIN [Concomitant]
  4. ZYRTEC [Concomitant]
  5. DIOVAN HCT [Concomitant]
     Indication: HYPERTENSION
     Dosage: 1DF=160/12.5
  6. LEXAPRO [Concomitant]
     Indication: DEPRESSION
  7. AMBIEN [Concomitant]
     Dosage: AT BEDTIME
  8. ATIVAN [Concomitant]
  9. COMPAZINE [Concomitant]

REACTIONS (2)
  - Palmar-plantar erythrodysaesthesia syndrome [Unknown]
  - Feeling abnormal [Unknown]
